FAERS Safety Report 9786418 (Version 3)
Quarter: 2014Q1

REPORT INFORMATION
  Report Type: Report from Study
  Country: US (occurrence: US)
  Receive Date: 20131227
  Receipt Date: 20140122
  Transmission Date: 20141002
  Serious: Yes (Hospitalization)
  Sender: FDA-Public Use
  Company Number: US-JNJFOC-20131104357

PATIENT
  Age: 16 Year
  Sex: Female
  Weight: 46.99 kg

DRUGS (6)
  1. REMICADE [Suspect]
     Indication: INFLAMMATORY BOWEL DISEASE
     Route: 042
  2. 5-ASA [Concomitant]
     Route: 065
  3. BENADRYL [Concomitant]
     Route: 065
  4. HYDROXYZINE [Concomitant]
     Route: 065
  5. PREDNISONE [Concomitant]
     Route: 065
  6. TRI-SPRINTEC [Concomitant]
     Route: 065

REACTIONS (1)
  - Septic shock [Recovered/Resolved]
